FAERS Safety Report 9687847 (Version 1)
Quarter: 2013Q4

REPORT INFORMATION
  Report Type: Spontaneous
  Country: US (occurrence: None)
  Receive Date: 20131113
  Receipt Date: 20131113
  Transmission Date: 20140711
  Serious: Yes (Other)
  Sender: FDA-Public Use
  Company Number: None

PATIENT
  Age: 97 Year
  Sex: Female
  Weight: 56.25 kg

DRUGS (5)
  1. ATENOLOL 25 MG TABLET [Suspect]
     Indication: HYPERTENSION
     Dosage: 1 PILL
     Route: 048
     Dates: start: 20121001
  2. SYNTHROID 75MCG [Concomitant]
  3. AMLODIPINE 10 MG [Concomitant]
  4. ASA 81 MG [Concomitant]
  5. HECTOROL ).5 MG [Concomitant]

REACTIONS (3)
  - Hypertension [None]
  - Oedema peripheral [None]
  - Vision blurred [None]
